FAERS Safety Report 24404325 (Version 1)
Quarter: 2024Q4

REPORT INFORMATION
  Report Type: Other
  Country: ES (occurrence: ES)
  Receive Date: 20241007
  Receipt Date: 20241007
  Transmission Date: 20250115
  Serious: Yes (Hospitalization, Other)
  Sender: APPCO PHARMA
  Company Number: ES-Appco Pharma LLC-2162568

PATIENT
  Age: 53 Year
  Sex: Male

DRUGS (11)
  1. METRONIDAZOLE [Suspect]
     Active Substance: METRONIDAZOLE
     Indication: Diverticulitis
  2. DISULFIRAM [Suspect]
     Active Substance: DISULFIRAM
  3. CIPROFLOXACIN [Concomitant]
     Active Substance: CIPROFLOXACIN
  4. TRAZODONE [Concomitant]
     Active Substance: TRAZODONE HYDROCHLORIDE
  5. ARIPIPRAZOLE [Concomitant]
     Active Substance: ARIPIPRAZOLE
  6. DESVENLAFAXINE [Concomitant]
     Active Substance: DESVENLAFAXINE
  7. BUPROPION [Concomitant]
     Active Substance: BUPROPION
  8. OLANZAPINE [Concomitant]
     Active Substance: OLANZAPINE
  9. LITHIUM [Concomitant]
     Active Substance: LITHIUM
  10. VALPROIC ACID [Concomitant]
     Active Substance: VALPROIC ACID
     Dates: start: 201907
  11. LORMETAZEPAM [Concomitant]
     Active Substance: LORMETAZEPAM

REACTIONS (3)
  - Toxic encephalopathy [Recovered/Resolved]
  - Product prescribing error [Unknown]
  - Drug interaction [Unknown]
